FAERS Safety Report 5253497-1 (Version None)
Quarter: 2007Q1

REPORT INFORMATION
  Report Type: 
  Country: None (occurrence: None)
  Receive Date: 20070301
  Receipt Date: 20070216
  Transmission Date: 20070707
  Serious: Yes (Death)
  Sender: FDA-Public Use
  Company Number: AT-ELI_LILLY_AND_COMPANY-AT200701004286

PATIENT
  Sex: Female

DRUGS (3)
  1. FLUOXETINE HCL [Suspect]
  2. HEROIN [Concomitant]
  3. UNKNOWN PRODUCT [Concomitant]

REACTIONS (1)
  - DRUG TOXICITY [None]
